FAERS Safety Report 13012578 (Version 1)
Quarter: 2016Q4

REPORT INFORMATION
  Report Type: Spontaneous
  Country: GB (occurrence: GB)
  Receive Date: 20161209
  Receipt Date: 20161209
  Transmission Date: 20170207
  Serious: Yes (Other)
  Sender: FDA-Public Use
  Company Number: GB-009507513-1612GBR002202

PATIENT
  Age: 11 Year
  Sex: Male

DRUGS (1)
  1. SINEMET PLUS [Suspect]
     Active Substance: CARBIDOPA\LEVODOPA
     Dosage: UNK
     Route: 048

REACTIONS (2)
  - Gastrointestinal tube insertion [Unknown]
  - Wrong technique in product usage process [Unknown]
